FAERS Safety Report 11194144 (Version 25)
Quarter: 2017Q2

REPORT INFORMATION
  Report Type: Report from Study
  Country: AT (occurrence: AT)
  Receive Date: 20150616
  Receipt Date: 20170606
  Transmission Date: 20170829
  Serious: Yes (Death, Hospitalization, Other)
  Sender: FDA-Public Use
  Company Number: AT-INCYTE CORPORATION-2014IN000926

PATIENT
  Age: 81 Year
  Sex: Male
  Weight: 82 kg

DRUGS (209)
  1. JAKAVI [Suspect]
     Active Substance: RUXOLITINIB
     Dosage: 10 MG, QD
     Route: 048
     Dates: start: 20140827
  2. ZOLADEX [Concomitant]
     Active Substance: GOSERELIN ACETATE
     Indication: PROSTATE CANCER METASTATIC
     Dosage: UNK
     Route: 065
  3. PLAVIX [Concomitant]
     Active Substance: CLOPIDOGREL BISULFATE
     Dosage: 75 MG, QD 1-0-0
     Route: 065
  4. PANTOLOC [Concomitant]
     Active Substance: PANTOPRAZOLE SODIUM
     Dosage: 40 MG, QD (1-0-0)
  5. SIMVASTATIN. [Concomitant]
     Active Substance: SIMVASTATIN
     Dosage: 40 MG, QD (1-0-0)
     Route: 065
  6. SIMVASTATIN. [Concomitant]
     Active Substance: SIMVASTATIN
     Dosage: (1/2-0-0) QD
     Route: 065
  7. SIMVASTATIN. [Concomitant]
     Active Substance: SIMVASTATIN
     Dosage: 40 MG, QD (1-0-0)
     Route: 065
  8. PRAM//CITALOPRAM HYDROBROMIDE [Concomitant]
     Dosage: 20 MG, QD(1-0-0)
     Route: 065
  9. PRAM//CITALOPRAM HYDROBROMIDE [Concomitant]
     Dosage: 20 MG, QD(1-0-0)
     Route: 065
  10. MOLSIDOLAT [Concomitant]
  11. MOLSIDOLAT [Concomitant]
  12. CLOPIDOGREL [Concomitant]
     Active Substance: CLOPIDOGREL BISULFATE
     Dosage: 1 DF, QD (1-0-0)
     Route: 065
  13. SPIRIVA [Concomitant]
     Active Substance: TIOTROPIUM BROMIDE MONOHYDRATE
     Dosage: 2.5 UG, QD (2-0-0)
  14. SPIRIVA [Concomitant]
     Active Substance: TIOTROPIUM BROMIDE MONOHYDRATE
     Dosage: 2.5 UG, QD (2-0-0)
  15. SPIRIVA [Concomitant]
     Active Substance: TIOTROPIUM BROMIDE MONOHYDRATE
     Dosage: 2 DF, BID (2-0-2)
     Route: 065
  16. NOVORAPID [Concomitant]
     Active Substance: INSULIN ASPART
     Dosage: UNK UNK, PRN
  17. CITALOPRAM [Concomitant]
     Active Substance: CITALOPRAM HYDROBROMIDE
     Route: 065
  18. CITALOPRAM [Concomitant]
     Active Substance: CITALOPRAM HYDROBROMIDE
     Route: 065
  19. CITALOPRAM [Concomitant]
     Active Substance: CITALOPRAM HYDROBROMIDE
     Dosage: UNK
     Route: 065
  20. ZOLADEX [Concomitant]
     Active Substance: GOSERELIN ACETATE
     Dosage: 3.6 OT, EVERY 3 MONTHS
  21. ZOLADEX [Concomitant]
     Active Substance: GOSERELIN ACETATE
     Dosage: 3.6 OT, EVERY 3 MONTHS
  22. ZOLADEX [Concomitant]
     Active Substance: GOSERELIN ACETATE
     Dosage: 3.6 OT, EVERY 3 MONTHS
  23. ZOLADEX [Concomitant]
     Active Substance: GOSERELIN ACETATE
     Dosage: 3.6 OT, EVERY 3 MONTHS
  24. CONCOR [Concomitant]
     Active Substance: BISOPROLOL FUMARATE
     Indication: PRODUCT USED FOR UNKNOWN INDICATION
     Dosage: 2.5 MG, UNK
     Route: 065
  25. PLAVIX [Concomitant]
     Active Substance: CLOPIDOGREL BISULFATE
     Dosage: 75 MG, QD 1-0-0
     Route: 065
  26. SIMVASTATIN. [Concomitant]
     Active Substance: SIMVASTATIN
     Dosage: 40 MG, QD (1-0-0)
     Route: 065
  27. SIMVASTATIN. [Concomitant]
     Active Substance: SIMVASTATIN
     Dosage: 40 MG, QD (1-0-0)
     Route: 065
  28. LASIX [Concomitant]
     Active Substance: FUROSEMIDE
     Indication: PRODUCT USED FOR UNKNOWN INDICATION
     Dosage: 40 MG; UNKNOWN
     Route: 065
  29. DANCOR [Concomitant]
     Active Substance: NICORANDIL
     Indication: PRODUCT USED FOR UNKNOWN INDICATION
     Dosage: 20 MG, UNK
     Route: 065
  30. DANCOR [Concomitant]
     Active Substance: NICORANDIL
     Dosage: 20 MG, BID (1-0-1)
  31. DANCOR [Concomitant]
     Active Substance: NICORANDIL
     Dosage: 20 MG, BID (1-0-1)
  32. PRAM//CITALOPRAM HYDROBROMIDE [Concomitant]
     Dosage: 20 MG, QD(1-0-0)
     Route: 065
  33. MOLSIDOLAT [Concomitant]
     Dosage: 0.5 DF, BID (0.5-0-0.5)
  34. MOLSIDOLAT [Concomitant]
     Dosage: 0.5 DF, BID (0.5-0-0.5)
  35. MOLSIDOLAT [Concomitant]
     Dosage: 0.5 DF, BID (0.5-0-0.5)
  36. MOLSIDOLAT [Concomitant]
     Dosage: 0.5 DF, BID (0.5-0-0.5)
  37. MOLSIDOLAT [Concomitant]
  38. MOLSIDOLAT [Concomitant]
     Dosage: 0.5 DF, BID (0.5-0-0.5)
  39. MOLSIDOLAT [Concomitant]
     Dosage: 0.5 DF, BID (0.5-0-0.5)
  40. SPIRIVA [Concomitant]
     Active Substance: TIOTROPIUM BROMIDE MONOHYDRATE
     Dosage: 2 DF, BID (2-0-2)
     Route: 065
  41. NOVORAPID [Concomitant]
     Active Substance: INSULIN ASPART
     Indication: PRODUCT USED FOR UNKNOWN INDICATION
     Dosage: UNK
     Route: 058
  42. NOVORAPID [Concomitant]
     Active Substance: INSULIN ASPART
     Dosage: UNK UNK, PRN
  43. ZOLADEX [Concomitant]
     Active Substance: GOSERELIN ACETATE
     Dosage: 3.6 OT, EVERY 3 MONTHS
  44. ZOLADEX [Concomitant]
     Active Substance: GOSERELIN ACETATE
     Dosage: 3.6 OT, EVERY 3 MONTHS
  45. PLAVIX [Concomitant]
     Active Substance: CLOPIDOGREL BISULFATE
     Dosage: 75 MG, QD 1-0-0
  46. PLAVIX [Concomitant]
     Active Substance: CLOPIDOGREL BISULFATE
     Dosage: 75 MG, QD 1-0-0
     Route: 065
  47. PLAVIX [Concomitant]
     Active Substance: CLOPIDOGREL BISULFATE
     Dosage: 75 MG, QD 1-0-0
     Route: 065
  48. PLAVIX [Concomitant]
     Active Substance: CLOPIDOGREL BISULFATE
     Dosage: 75 MG, QD 1-0-0
     Route: 065
  49. PLAVIX [Concomitant]
     Active Substance: CLOPIDOGREL BISULFATE
     Dosage: 75 MG, QD 1-0-0
     Route: 065
  50. PANTOLOC [Concomitant]
     Active Substance: PANTOPRAZOLE SODIUM
     Dosage: 1 DF, QD
     Route: 065
  51. PANTOLOC [Concomitant]
     Active Substance: PANTOPRAZOLE SODIUM
     Dosage: 1 DF, QD
     Route: 065
  52. PANTOLOC [Concomitant]
     Active Substance: PANTOPRAZOLE SODIUM
     Dosage: 40 MG, QD (1-0-0)
     Route: 065
  53. PANTOLOC [Concomitant]
     Active Substance: PANTOPRAZOLE SODIUM
     Dosage: 1 DF, QD
     Route: 065
  54. PANTOLOC [Concomitant]
     Active Substance: PANTOPRAZOLE SODIUM
     Dosage: 40 MG, QD (1-0-0)
     Route: 065
  55. PANTOLOC [Concomitant]
     Active Substance: PANTOPRAZOLE SODIUM
     Dosage: 1 DF, QD
     Route: 065
  56. PANTOLOC [Concomitant]
     Active Substance: PANTOPRAZOLE SODIUM
     Dosage: 40 MG, QD (1-0-0)
     Route: 065
  57. SIMVASTATIN. [Concomitant]
     Active Substance: SIMVASTATIN
     Dosage: (1/2-0-0) QD
     Route: 065
  58. SIMVASTATIN. [Concomitant]
     Active Substance: SIMVASTATIN
     Dosage: (1/2-0-0) QD
     Route: 065
  59. PRAM//CITALOPRAM HYDROBROMIDE [Concomitant]
     Dosage: 20 MG, QD(1-0-0)
     Route: 065
  60. MOLSIDOLAT [Concomitant]
     Dosage: 4 MG, 1/2-0-1/2
     Route: 065
  61. MOLSIDOLAT [Concomitant]
     Dosage: 4 MG, 1/2-0-1/2
     Route: 065
  62. MAXI-KALZ [Concomitant]
     Dosage: UNK UNK, QD (1-0-0)
  63. MAXI-KALZ [Concomitant]
     Dosage: UNK UNK, QD (1-0-0)
  64. MAXI-KALZ [Concomitant]
     Dosage: UNK UNK, QD (1-0-0)
  65. MAXI-KALZ [Concomitant]
     Dosage: UNK UNK, QD (1-0-0)
  66. CLOPIDOGREL [Concomitant]
     Active Substance: CLOPIDOGREL BISULFATE
     Dosage: 1 DF, QD (1-0-0)
     Route: 065
  67. CLOPIDOGREL [Concomitant]
     Active Substance: CLOPIDOGREL BISULFATE
     Dosage: 1 DF, QD (1-0-0)
     Route: 065
  68. CLOPIDOGREL [Concomitant]
     Active Substance: CLOPIDOGREL BISULFATE
     Dosage: 1 DF, QD (1-0-0)
     Route: 065
  69. SPIRIVA [Concomitant]
     Active Substance: TIOTROPIUM BROMIDE MONOHYDRATE
     Dosage: 2 DF, BID (2-0-2)
     Route: 065
  70. SPIRIVA [Concomitant]
     Active Substance: TIOTROPIUM BROMIDE MONOHYDRATE
     Dosage: 2.5 UG, QD (2-0-0)
  71. SPIRIVA [Concomitant]
     Active Substance: TIOTROPIUM BROMIDE MONOHYDRATE
     Dosage: 2 DF, BID (2-0-2)
     Route: 065
  72. NOVORAPID [Concomitant]
     Active Substance: INSULIN ASPART
     Dosage: UNK UNK, PRN
  73. NOVORAPID [Concomitant]
     Active Substance: INSULIN ASPART
     Dosage: UNK UNK, PRN
  74. CITALOPRAM [Concomitant]
     Active Substance: CITALOPRAM HYDROBROMIDE
     Route: 065
  75. CITALOPRAM [Concomitant]
     Active Substance: CITALOPRAM HYDROBROMIDE
     Dosage: UNK
     Route: 065
  76. CITALOPRAM [Concomitant]
     Active Substance: CITALOPRAM HYDROBROMIDE
     Route: 065
  77. CITALOPRAM [Concomitant]
     Active Substance: CITALOPRAM HYDROBROMIDE
     Route: 065
  78. JAKAVI [Suspect]
     Active Substance: RUXOLITINIB
     Dosage: 10 MG, QD
     Route: 048
     Dates: start: 20141201, end: 20170509
  79. ZOLADEX [Concomitant]
     Active Substance: GOSERELIN ACETATE
     Dosage: 3.6 OT, EVERY 3 MONTHS
  80. ZOLADEX [Concomitant]
     Active Substance: GOSERELIN ACETATE
     Dosage: 3.6 OT, EVERY 3 MONTHS
  81. PLAVIX [Concomitant]
     Active Substance: CLOPIDOGREL BISULFATE
     Dosage: 75 MG, QD 1-0-0
  82. SIMVASTATIN. [Concomitant]
     Active Substance: SIMVASTATIN
     Dosage: 40 MG, QD (1-0-0)
     Route: 065
  83. SIMVASTATIN. [Concomitant]
     Active Substance: SIMVASTATIN
     Dosage: (1/2-0-0) QD
     Route: 065
  84. SIMVASTATIN. [Concomitant]
     Active Substance: SIMVASTATIN
     Dosage: (1/2-0-0) QD
     Route: 065
  85. SIMVASTATIN. [Concomitant]
     Active Substance: SIMVASTATIN
     Dosage: (1/2-0-0) QD
     Route: 065
  86. SIMVASTATIN. [Concomitant]
     Active Substance: SIMVASTATIN
     Dosage: (1/2-0-0) QD
     Route: 065
  87. DANCOR [Concomitant]
     Active Substance: NICORANDIL
     Dosage: 20 MG, BID (1-0-1)
  88. DANCOR [Concomitant]
     Active Substance: NICORANDIL
     Dosage: 20 MG, BID (1-0-1)
  89. PRAM//CITALOPRAM HYDROBROMIDE [Concomitant]
     Dosage: 20 MG, QD(1-0-0)
     Route: 065
  90. PRAM//CITALOPRAM HYDROBROMIDE [Concomitant]
     Dosage: 20 MG, QD(1-0-0)
     Route: 065
  91. MOLSIDOLAT [Concomitant]
     Dosage: 0.5 DF, BID (0.5-0-0.5)
  92. MAXI-KALZ [Concomitant]
     Dosage: UNK UNK, QD (1-0-0)
  93. MAXI-KALZ [Concomitant]
     Dosage: UNK UNK, QD (1-0-0)
  94. CLOPIDOGREL [Concomitant]
     Active Substance: CLOPIDOGREL BISULFATE
     Indication: PRODUCT USED FOR UNKNOWN INDICATION
     Dosage: 75 MG, UNK
     Route: 065
  95. CLOPIDOGREL [Concomitant]
     Active Substance: CLOPIDOGREL BISULFATE
     Dosage: 1 DF, QD (1-0-0)
     Route: 065
  96. CLOPIDOGREL [Concomitant]
     Active Substance: CLOPIDOGREL BISULFATE
     Dosage: 1 DF, QD (1-0-0)
     Route: 065
  97. CLOPIDOGREL [Concomitant]
     Active Substance: CLOPIDOGREL BISULFATE
     Dosage: 1 DF, QD (1-0-0)
     Route: 065
  98. SPIRIVA [Concomitant]
     Active Substance: TIOTROPIUM BROMIDE MONOHYDRATE
     Indication: PRODUCT USED FOR UNKNOWN INDICATION
     Dosage: 2.5 UG, UNK
     Route: 065
  99. SPIRIVA [Concomitant]
     Active Substance: TIOTROPIUM BROMIDE MONOHYDRATE
     Dosage: 2.5 UG, QD (2-0-0)
  100. NOVORAPID [Concomitant]
     Active Substance: INSULIN ASPART
     Dosage: UNK UNK, PRN
  101. CITALOPRAM [Concomitant]
     Active Substance: CITALOPRAM HYDROBROMIDE
     Indication: PRODUCT USED FOR UNKNOWN INDICATION
     Dosage: UNK
     Route: 065
  102. CITALOPRAM [Concomitant]
     Active Substance: CITALOPRAM HYDROBROMIDE
     Route: 065
  103. CITALOPRAM [Concomitant]
     Active Substance: CITALOPRAM HYDROBROMIDE
     Route: 065
  104. ZOMETA [Suspect]
     Active Substance: ZOLEDRONIC ACID
     Indication: PROSTATE CANCER
     Dosage: UNK
     Route: 065
     Dates: start: 20090425, end: 2009
  105. CASODEX [Concomitant]
     Active Substance: BICALUTAMIDE
     Indication: PROSTATE CANCER METASTATIC
     Dosage: 50 MG, UNK
     Route: 065
  106. ZOLADEX [Concomitant]
     Active Substance: GOSERELIN ACETATE
     Dosage: 3.6 OT, EVERY 3 MONTHS
  107. ZOLADEX [Concomitant]
     Active Substance: GOSERELIN ACETATE
     Dosage: 3.6 OT, EVERY 3 MONTHS
  108. PANTOLOC [Concomitant]
     Active Substance: PANTOPRAZOLE SODIUM
     Dosage: 40 MG, QD (1-0-0)
     Route: 065
  109. PANTOLOC [Concomitant]
     Active Substance: PANTOPRAZOLE SODIUM
     Dosage: 1 DF, QD
     Route: 065
  110. SIMVASTATIN. [Concomitant]
     Active Substance: SIMVASTATIN
     Dosage: (1/2-0-0) QD
     Route: 065
  111. SIMVASTATIN. [Concomitant]
     Active Substance: SIMVASTATIN
     Dosage: 40 MG, QD (1-0-0)
     Route: 065
  112. SIMVASTATIN. [Concomitant]
     Active Substance: SIMVASTATIN
     Dosage: (1/2-0-0) QD
     Route: 065
  113. SIMVASTATIN. [Concomitant]
     Active Substance: SIMVASTATIN
     Dosage: 40 MG, QD (1-0-0)
     Route: 065
  114. LASIX [Concomitant]
     Active Substance: FUROSEMIDE
     Indication: DYSPNOEA
     Dosage: QD (1/2-0-0)
     Route: 065
  115. DANCOR [Concomitant]
     Active Substance: NICORANDIL
     Dosage: 20 MG, BID (1-0-1)
  116. DANCOR [Concomitant]
     Active Substance: NICORANDIL
     Dosage: 20 MG, BID (1-0-1)
  117. PRAM//CITALOPRAM HYDROBROMIDE [Concomitant]
     Dosage: 20 MG, QD(1-0-0)
     Route: 065
  118. PRAM//CITALOPRAM HYDROBROMIDE [Concomitant]
     Dosage: 20 MG, QD(1-0-0)
     Route: 065
  119. MOLSIDOLAT [Concomitant]
     Dosage: 0.5 DF, BID (0.5-0-0.5)
  120. MOLSIDOLAT [Concomitant]
     Dosage: 0.5 DF, BID (0.5-0-0.5)
  121. MOLSIDOLAT [Concomitant]
     Dosage: 4 MG, 1/2-0-1/2
     Route: 065
  122. MOLSIDOLAT [Concomitant]
     Dosage: 4 MG, 1/2-0-1/2
     Route: 065
  123. MOLSIDOLAT [Concomitant]
  124. MAXI-KALZ [Concomitant]
     Indication: PRODUCT USED FOR UNKNOWN INDICATION
     Dosage: 500 MG, UNK
     Route: 065
  125. MAXI-KALZ [Concomitant]
     Dosage: UNK UNK, QD (1-0-0)
  126. SPIRIVA [Concomitant]
     Active Substance: TIOTROPIUM BROMIDE MONOHYDRATE
     Dosage: 2.5 UG, QD (2-0-0)
  127. SPIRIVA [Concomitant]
     Active Substance: TIOTROPIUM BROMIDE MONOHYDRATE
     Dosage: 2 DF, BID (2-0-2)
     Route: 065
  128. NOVORAPID [Concomitant]
     Active Substance: INSULIN ASPART
     Dosage: UNK UNK, PRN
  129. NOVORAPID [Concomitant]
     Active Substance: INSULIN ASPART
     Dosage: UNK UNK, PRN
  130. NOVORAPID [Concomitant]
     Active Substance: INSULIN ASPART
     Dosage: UNK UNK, PRN
  131. CITALOPRAM [Concomitant]
     Active Substance: CITALOPRAM HYDROBROMIDE
     Route: 065
  132. JAKAVI [Suspect]
     Active Substance: RUXOLITINIB
     Indication: PRIMARY MYELOFIBROSIS
     Dosage: 10 MG, QD
     Route: 048
     Dates: start: 20130603, end: 20140122
  133. JAKAVI [Suspect]
     Active Substance: RUXOLITINIB
     Dosage: 5 MG, QD
     Route: 048
     Dates: start: 20140811
  134. ZOLADEX [Concomitant]
     Active Substance: GOSERELIN ACETATE
     Dosage: 3.6 OT, EVERY 3 MONTHS
  135. PLAVIX [Concomitant]
     Active Substance: CLOPIDOGREL BISULFATE
     Dosage: 75 MG, QD 1-0-0
     Route: 065
  136. PANTOLOC [Concomitant]
     Active Substance: PANTOPRAZOLE SODIUM
     Indication: PRODUCT USED FOR UNKNOWN INDICATION
     Dosage: 20 MG, UNK
     Route: 065
  137. PANTOLOC [Concomitant]
     Active Substance: PANTOPRAZOLE SODIUM
     Dosage: 40 MG, QD (1-0-0)
  138. PANTOLOC [Concomitant]
     Active Substance: PANTOPRAZOLE SODIUM
     Dosage: 40 MG, QD (1-0-0)
     Route: 065
  139. PANTOLOC [Concomitant]
     Active Substance: PANTOPRAZOLE SODIUM
     Dosage: 1 DF, QD
     Route: 065
  140. PANTOLOC [Concomitant]
     Active Substance: PANTOPRAZOLE SODIUM
     Dosage: 1 DF, QD
     Route: 065
  141. SIMVASTATIN. [Concomitant]
     Active Substance: SIMVASTATIN
     Dosage: (1/2-0-0) QD
     Route: 065
  142. SIMVASTATIN. [Concomitant]
     Active Substance: SIMVASTATIN
     Dosage: 40 MG, QD (1-0-0)
     Route: 065
  143. SIMVASTATIN. [Concomitant]
     Active Substance: SIMVASTATIN
     Dosage: (1/2-0-0) QD
     Route: 065
  144. SIMVASTATIN. [Concomitant]
     Active Substance: SIMVASTATIN
     Dosage: 40 MG, QD (1-0-0)
     Route: 065
  145. DANCOR [Concomitant]
     Active Substance: NICORANDIL
     Dosage: 20 MG, BID (1-0-1)
  146. DANCOR [Concomitant]
     Active Substance: NICORANDIL
     Dosage: 20 MG, BID (1-0-1)
  147. PRAM//CITALOPRAM HYDROBROMIDE [Concomitant]
     Dosage: 20 MG, QD(1-0-0)
     Route: 065
  148. MAXI-KALZ [Concomitant]
     Dosage: UNK UNK, QD (1-0-0)
  149. MAXI-KALZ [Concomitant]
     Dosage: UNK UNK, QD (1-0-0)
  150. MAXI-KALZ [Concomitant]
     Dosage: UNK UNK, QD (1-0-0)
  151. CLOPIDOGREL [Concomitant]
     Active Substance: CLOPIDOGREL BISULFATE
     Dosage: 1 DF, QD (1-0-0)
     Route: 065
  152. NOVORAPID [Concomitant]
     Active Substance: INSULIN ASPART
     Dosage: UNK UNK, PRN
  153. JAKAVI [Suspect]
     Active Substance: RUXOLITINIB
     Dosage: UNK
     Route: 048
     Dates: start: 20140217
  154. PLAVIX [Concomitant]
     Active Substance: CLOPIDOGREL BISULFATE
     Dosage: 75 MG, QD 1-0-0
  155. PLAVIX [Concomitant]
     Active Substance: CLOPIDOGREL BISULFATE
     Dosage: 75 MG, QD 1-0-0
     Route: 065
  156. PANTOLOC [Concomitant]
     Active Substance: PANTOPRAZOLE SODIUM
     Dosage: 1 DF, QD
     Route: 065
  157. PANTOLOC [Concomitant]
     Active Substance: PANTOPRAZOLE SODIUM
     Dosage: 40 MG, QD (1-0-0)
     Route: 065
  158. PANTOLOC [Concomitant]
     Active Substance: PANTOPRAZOLE SODIUM
     Dosage: 40 MG, QD (1-0-0)
     Route: 065
  159. PANTOLOC [Concomitant]
     Active Substance: PANTOPRAZOLE SODIUM
     Dosage: 1 DF, QD
     Route: 065
  160. PANTOLOC [Concomitant]
     Active Substance: PANTOPRAZOLE SODIUM
     Dosage: 40 MG, QD (1-0-0)
     Route: 065
  161. SIMVASTATIN. [Concomitant]
     Active Substance: SIMVASTATIN
     Dosage: 40 MG, QD (1-0-0)
     Route: 065
  162. SIMVASTATIN. [Concomitant]
     Active Substance: SIMVASTATIN
     Dosage: 40 MG, QD (1-0-0)
     Route: 065
  163. LASIX [Concomitant]
     Active Substance: FUROSEMIDE
     Indication: WEIGHT CONTROL
     Dosage: 20 MG, QD (1-0-0)
     Route: 065
  164. DANCOR [Concomitant]
     Active Substance: NICORANDIL
     Dosage: 20 MG, BID (1-0-1)
     Route: 065
  165. DANCOR [Concomitant]
     Active Substance: NICORANDIL
     Dosage: 20 MG, BID (1-0-1)
  166. MOLSIDOLAT [Concomitant]
     Indication: PRODUCT USED FOR UNKNOWN INDICATION
     Dosage: 4 MG, UNK
     Route: 065
  167. MOLSIDOLAT [Concomitant]
  168. MOLSIDOLAT [Concomitant]
     Dosage: 0.5 DF, BID (0.5-0-0.5)
  169. MAXI-KALZ [Concomitant]
     Dosage: UNK UNK, QD (1-0-0)
  170. CLOPIDOGREL [Concomitant]
     Active Substance: CLOPIDOGREL BISULFATE
     Dosage: 1 DF, QD (1-0-0)
     Route: 065
  171. CLOPIDOGREL [Concomitant]
     Active Substance: CLOPIDOGREL BISULFATE
     Dosage: 1 DF, QD (1-0-0)
     Route: 065
  172. CLOPIDOGREL [Concomitant]
     Active Substance: CLOPIDOGREL BISULFATE
     Dosage: 1 DF, QD (1-0-0)
     Route: 065
  173. CLOPIDOGREL [Concomitant]
     Active Substance: CLOPIDOGREL BISULFATE
     Dosage: 1 DF, QD (1-0-0)
     Route: 065
  174. SPIRIVA [Concomitant]
     Active Substance: TIOTROPIUM BROMIDE MONOHYDRATE
     Dosage: 2.5 UG, QD (2-0-0)
  175. SPIRIVA [Concomitant]
     Active Substance: TIOTROPIUM BROMIDE MONOHYDRATE
     Dosage: 2.5 UG, QD (2-0-0)
  176. SPIRIVA [Concomitant]
     Active Substance: TIOTROPIUM BROMIDE MONOHYDRATE
     Dosage: 2 DF, BID (2-0-2)
     Route: 065
  177. SPIRIVA [Concomitant]
     Active Substance: TIOTROPIUM BROMIDE MONOHYDRATE
     Dosage: 2.5 UG, QD (2-0-0)
  178. SPIRIVA [Concomitant]
     Active Substance: TIOTROPIUM BROMIDE MONOHYDRATE
     Dosage: 2.5 UG, QD (2-0-0)
  179. SPIRIVA [Concomitant]
     Active Substance: TIOTROPIUM BROMIDE MONOHYDRATE
     Dosage: 2.5 UG, QD (2-0-0)
  180. SPIRIVA [Concomitant]
     Active Substance: TIOTROPIUM BROMIDE MONOHYDRATE
     Dosage: 2.5 UG, QD (2-0-0)
  181. NOVORAPID [Concomitant]
     Active Substance: INSULIN ASPART
     Dosage: UNK UNK, PRN
  182. JAKAVI [Suspect]
     Active Substance: RUXOLITINIB
     Dosage: 10 MG, UNK
     Route: 048
     Dates: start: 20140526
  183. ACEMIN [Suspect]
     Active Substance: LISINOPRIL
     Indication: HYPERTENSION
     Dosage: UNKNOWN
     Route: 065
  184. ZOLADEX [Concomitant]
     Active Substance: GOSERELIN ACETATE
     Dosage: 3.6 OT, EVERY 3 MONTHS
  185. PLAVIX [Concomitant]
     Active Substance: CLOPIDOGREL BISULFATE
     Indication: ACUTE MYOCARDIAL INFARCTION
     Dosage: UNK
     Route: 065
  186. PLAVIX [Concomitant]
     Active Substance: CLOPIDOGREL BISULFATE
     Dosage: 75 MG, QD 1-0-0
  187. PANTOLOC [Concomitant]
     Active Substance: PANTOPRAZOLE SODIUM
     Dosage: 40 MG, QD (1-0-0)
     Route: 065
  188. PANTOLOC [Concomitant]
     Active Substance: PANTOPRAZOLE SODIUM
     Dosage: 1 DF, QD
     Route: 065
  189. PANTOLOC [Concomitant]
     Active Substance: PANTOPRAZOLE SODIUM
     Dosage: 40 MG, QD (1-0-0)
     Route: 065
  190. PANTOLOC [Concomitant]
     Active Substance: PANTOPRAZOLE SODIUM
     Dosage: 1 DF, QD
     Route: 065
  191. SIMVASTATIN. [Concomitant]
     Active Substance: SIMVASTATIN
     Indication: PRODUCT USED FOR UNKNOWN INDICATION
     Dosage: 40 MG, UNKNOWN
     Route: 065
  192. SIMVASTATIN. [Concomitant]
     Active Substance: SIMVASTATIN
     Dosage: 40 MG, QD (1-0-0)
     Route: 065
  193. SIMVASTATIN. [Concomitant]
     Active Substance: SIMVASTATIN
     Dosage: (1/2-0-0) QD
     Route: 065
  194. DANCOR [Concomitant]
     Active Substance: NICORANDIL
     Dosage: 20 MG, BID (1-0-1)
  195. DANCOR [Concomitant]
     Active Substance: NICORANDIL
     Dosage: 20 MG, BID (1-0-1)
  196. PRAM//CITALOPRAM HYDROBROMIDE [Concomitant]
     Indication: PRODUCT USED FOR UNKNOWN INDICATION
     Dosage: 20 MG, UNK
     Route: 065
  197. PRAM//CITALOPRAM HYDROBROMIDE [Concomitant]
     Dosage: 20 MG, QD(1-0-0)
     Route: 065
  198. PRAM//CITALOPRAM HYDROBROMIDE [Concomitant]
     Dosage: 20 MG, QD(1-0-0)
     Route: 065
  199. PRAM//CITALOPRAM HYDROBROMIDE [Concomitant]
     Dosage: 20 MG, QD(1-0-0)
     Route: 065
  200. MOLSIDOLAT [Concomitant]
     Dosage: 4 MG, 1/2-0-1/2
     Route: 065
  201. MOLSIDOLAT [Concomitant]
     Dosage: 0.5 DF, BID (0.5-0-0.5)
  202. MOLSIDOLAT [Concomitant]
     Dosage: 0.5 DF, BID (0.5-0-0.5)
  203. MOLSIDOLAT [Concomitant]
     Dosage: 4 MG, 1/2-0-1/2
     Route: 065
  204. MAXI-KALZ [Concomitant]
     Dosage: UNK UNK, QD (1-0-0)
  205. SPIRIVA [Concomitant]
     Active Substance: TIOTROPIUM BROMIDE MONOHYDRATE
     Dosage: 2.5 UG, QD (2-0-0)
  206. NOVORAPID [Concomitant]
     Active Substance: INSULIN ASPART
     Dosage: UNK UNK, PRN
  207. NOVORAPID [Concomitant]
     Active Substance: INSULIN ASPART
     Dosage: UNK UNK, PRN
  208. CITALOPRAM [Concomitant]
     Active Substance: CITALOPRAM HYDROBROMIDE
     Route: 065
  209. CITALOPRAM [Concomitant]
     Active Substance: CITALOPRAM HYDROBROMIDE
     Route: 065

REACTIONS (33)
  - Anaemia [Recovered/Resolved]
  - Anaemia [Recovered/Resolved]
  - Anaemia [Recovering/Resolving]
  - Blood glucose increased [Unknown]
  - Transferrin decreased [Unknown]
  - Somnolence [Unknown]
  - Acute myocardial infarction [Recovered/Resolved]
  - Left ventricular hypertrophy [Unknown]
  - Blood lactate dehydrogenase increased [Unknown]
  - General physical health deterioration [Unknown]
  - Dyspnoea exertional [Unknown]
  - Pallor [Unknown]
  - Hyperhidrosis [Unknown]
  - Blood pressure decreased [Unknown]
  - Nausea [Unknown]
  - Death [Fatal]
  - Pain in extremity [Not Recovered/Not Resolved]
  - Obesity [Unknown]
  - Osteitis [Recovered/Resolved]
  - Aplastic anaemia [Recovered/Resolved]
  - General physical health deterioration [Recovered/Resolved with Sequelae]
  - Prostate cancer recurrent [Not Recovered/Not Resolved]
  - Tachycardia [Unknown]
  - Anaemia [Recovered/Resolved with Sequelae]
  - Oedema peripheral [Unknown]
  - Platelet count decreased [Recovered/Resolved]
  - Syncope [Unknown]
  - Rales [Unknown]
  - Splenomegaly [Unknown]
  - General physical health deterioration [Recovered/Resolved with Sequelae]
  - Thrombocytopenia [Unknown]
  - Infection [Recovered/Resolved]
  - Platelet anisocytosis [Unknown]

NARRATIVE: CASE EVENT DATE: 20140319
